FAERS Safety Report 5805901-5 (Version None)
Quarter: 2008Q3

REPORT INFORMATION
  Report Type: 
  Country: None (occurrence: None)
  Receive Date: 20080708
  Receipt Date: 20080624
  Transmission Date: 20090109
  Serious: Yes (Other)
  Sender: FDA-Public Use
  Company Number: 440016M08USA

PATIENT
  Age: 38 Year
  Sex: Female

DRUGS (1)
  1. SEROSTIM [Suspect]
     Indication: CACHEXIA
     Dosage: 3 MG, 1 IN 1 DAYS

REACTIONS (1)
  - TYPE 1 DIABETES MELLITUS [None]
